FAERS Safety Report 5984030-4 (Version None)
Quarter: 2008Q4

REPORT INFORMATION
  Report Type: 
  Country: None (occurrence: None)
  Receive Date: 20081208
  Receipt Date: 20081128
  Transmission Date: 20090506
  Serious: Yes (Other)
  Sender: FDA-Public Use
  Company Number: JP-ASTRAZENECA-2008AP09406

PATIENT
  Age: 22332 Day
  Sex: Female

DRUGS (18)
  1. MEROPEN [Suspect]
     Indication: INFECTION
     Route: 041
     Dates: start: 20080303, end: 20080313
  2. MEROPEN [Suspect]
     Indication: TOXIC SKIN ERUPTION
     Route: 041
     Dates: start: 20080303, end: 20080313
  3. PREDONINE [Concomitant]
     Indication: TOXIC SKIN ERUPTION
     Route: 048
     Dates: start: 20080310, end: 20080326
  4. ROCEPHIN [Concomitant]
     Indication: TOXIC SKIN ERUPTION
  5. CHLOR-TRIMETON [Concomitant]
     Indication: TOXIC SKIN ERUPTION
  6. NEO-MINOPHAGEN C [Concomitant]
     Indication: TOXIC SKIN ERUPTION
  7. FAMOTIDINE [Concomitant]
     Indication: GASTRITIS
  8. VENOGLOBULIN [Concomitant]
     Indication: TOXIC SKIN ERUPTION
  9. LASIX [Concomitant]
     Indication: TOXIC SKIN ERUPTION
  10. ALBUMIN (HUMAN) [Concomitant]
     Indication: TOXIC SKIN ERUPTION
  11. SOLU-MEDROL [Concomitant]
     Indication: TOXIC SKIN ERUPTION
  12. NEOPHYLLIN [Concomitant]
     Indication: TOXIC SKIN ERUPTION
  13. MINOCYCLINE HCL [Concomitant]
     Indication: TOXIC SKIN ERUPTION
  14. MINOCYCLINE HCL [Concomitant]
     Indication: INFECTION
  15. COTRIM [Concomitant]
     Indication: TOXIC SKIN ERUPTION
  16. COTRIM [Concomitant]
     Indication: INFECTION
  17. ALLEGRA [Concomitant]
     Indication: TOXIC SKIN ERUPTION
     Route: 048
     Dates: start: 20080311, end: 20080313
  18. ALLEGRA [Concomitant]
     Indication: INFECTION
     Route: 048
     Dates: start: 20080311, end: 20080313

REACTIONS (1)
  - DRUG RASH WITH EOSINOPHILIA AND SYSTEMIC SYMPTOMS [None]
